FAERS Safety Report 10824299 (Version 1)
Quarter: 2015Q1

REPORT INFORMATION
  Report Type: Report from Study
  Country: US (occurrence: US)
  Receive Date: 20150219
  Receipt Date: 20150219
  Transmission Date: 20150721
  Serious: Yes (Hospitalization, Other)
  Sender: FDA-Public Use
  Company Number: US-ABBVIE-14K-163-1310809-00

PATIENT
  Age: 82 Year
  Sex: Female

DRUGS (3)
  1. HUMIRA [Suspect]
     Active Substance: ADALIMUMAB
     Dosage: DAY 15
     Route: 065
     Dates: start: 20140912, end: 20140912
  2. HUMIRA [Suspect]
     Active Substance: ADALIMUMAB
     Indication: COLITIS ULCERATIVE
     Dosage: DAY 1
     Route: 065
     Dates: start: 20140829, end: 20140829
  3. HUMIRA [Suspect]
     Active Substance: ADALIMUMAB
     Route: 065
     Dates: start: 2014, end: 20141121

REACTIONS (9)
  - Spinal fracture [Recovering/Resolving]
  - Muscle spasms [Not Recovered/Not Resolved]
  - Rash papular [Not Recovered/Not Resolved]
  - Spinal fracture [Unknown]
  - Rash pruritic [Recovering/Resolving]
  - Back pain [Recovering/Resolving]
  - Drug dose omission [Unknown]
  - Rash papular [Recovering/Resolving]
  - Skin exfoliation [Unknown]

NARRATIVE: CASE EVENT DATE: 2014
